FAERS Safety Report 5990623-0 (Version None)
Quarter: 2008Q4

REPORT INFORMATION
  Report Type: 
  Country: None (occurrence: None)
  Receive Date: 20081211
  Receipt Date: 20081205
  Transmission Date: 20090506
  Serious: Yes (Life-Threatening)
  Sender: FDA-Public Use
  Company Number: B0534714A

PATIENT
  Age: 38 Year
  Sex: Female
  Weight: 85 kg

DRUGS (11)
  1. CEFUROXIME [Suspect]
     Indication: PROPHYLAXIS
     Route: 042
     Dates: start: 20080601, end: 20080601
  2. ICODEXTRIN [Suspect]
     Indication: ADHESION
     Route: 033
     Dates: start: 20080601, end: 20080601
  3. THIOPENTAL SODIUM [Concomitant]
  4. SUXAMETHONIUM [Concomitant]
  5. VECURONIUM BROMIDE [Concomitant]
  6. MIDAZOLAM HCL [Concomitant]
  7. FENTANYL-100 [Concomitant]
  8. METRONIDAZOLE [Concomitant]
  9. INSULIN [Concomitant]
  10. ENOXAPARIN SODIUM [Concomitant]
  11. PANTOPRAZOLE SODIUM [Concomitant]

REACTIONS (5)
  - ANAPHYLACTIC REACTION [None]
  - BRONCHOSPASM [None]
  - HYPOTENSION [None]
  - HYPOXIA [None]
  - TRYPTASE INCREASED [None]
